FAERS Safety Report 14310054 (Version 6)
Quarter: 2018Q3

REPORT INFORMATION
  Report Type: Report from Study
  Country: US (occurrence: US)
  Receive Date: 20171220
  Receipt Date: 20180914
  Transmission Date: 20181010
  Serious: No
  Sender: FDA-Public Use
  Company Number: US-THERATECHNOLOGIES, INC.-TH-2017-00393

PATIENT

DRUGS (1)
  1. EGRIFTA [Suspect]
     Active Substance: TESAMORELIN
     Indication: CEREBRAL TOXOPLASMOSIS
     Dosage: 2 MG MILLIGRAM(S), QD
     Route: 058

REACTIONS (7)
  - Drug administration error [Unknown]
  - Myalgia [Recovered/Resolved]
  - Pain in extremity [Unknown]
  - Pruritus [Unknown]
  - Peripheral swelling [Not Recovered/Not Resolved]
  - Carpal tunnel syndrome [Not Recovered/Not Resolved]
  - Joint swelling [Not Recovered/Not Resolved]
